FAERS Safety Report 4995561-8 (Version None)
Quarter: 2006Q2

REPORT INFORMATION
  Report Type: 
  Country: None (occurrence: None)
  Receive Date: 20060508
  Receipt Date: 20050629
  Transmission Date: 20061013
  Serious: Yes (Hospitalization, Disabling)
  Sender: FDA-Public Use
  Company Number: US-ROCHE-409506

PATIENT
  Age: 14 Year
  Sex: Male
  Weight: 99.8 kg

DRUGS (4)
  1. ACCUTANE [Suspect]
     Indication: ACNE
     Route: 048
     Dates: start: 19991215, end: 20000315
  2. DOXYCYCLINE [Concomitant]
     Indication: ACNE
  3. TRIAZ [Concomitant]
     Indication: ACNE
  4. RETIN-A MICRO [Concomitant]
     Indication: ACNE

REACTIONS (14)
  - ARTHRALGIA [None]
  - ARTHRITIS [None]
  - ARTHROPATHY [None]
  - BACTERIAL INFECTION [None]
  - BLOOD TRIGLYCERIDES INCREASED [None]
  - BONE DISORDER [None]
  - EPIPHYSEAL INJURY [None]
  - EPISTAXIS [None]
  - INTERVERTEBRAL DISC PROTRUSION [None]
  - JOINT DISLOCATION [None]
  - MYALGIA [None]
  - PARAESTHESIA [None]
  - PATELLOFEMORAL PAIN SYNDROME [None]
  - TOOTHACHE [None]
